FAERS Safety Report 23089573 (Version 1)
Quarter: 2023Q4

REPORT INFORMATION
  Report Type: Spontaneous
  Country: CN (occurrence: CN)
  Receive Date: 20231020
  Receipt Date: 20231020
  Transmission Date: 20240110
  Serious: Yes (Death)
  Sender: FDA-Public Use
  Company Number: CN-JNJFOC-20231027349

PATIENT

DRUGS (3)
  1. IBUPROFEN [Suspect]
     Active Substance: IBUPROFEN
     Indication: Pyrexia
     Route: 048
  2. ACETAMINOPHEN [Suspect]
     Active Substance: ACETAMINOPHEN
     Indication: Pyrexia
     Route: 048
  3. INDOMETHACIN [Suspect]
     Active Substance: INDOMETHACIN
     Indication: Pyrexia
     Dosage: ROUTE: TRANS-ANAL
     Route: 065

REACTIONS (9)
  - Stress ulcer [Fatal]
  - Hepatic function abnormal [Fatal]
  - Renal impairment [Fatal]
  - Atrial fibrillation [Fatal]
  - Pneumonia [Fatal]
  - Cerebral infarction [Fatal]
  - Pneumonia [Fatal]
  - Brain oedema [Fatal]
  - Off label use [Fatal]
